FAERS Safety Report 10779928 (Version 1)
Quarter: 2015Q1

REPORT INFORMATION
  Report Type: Spontaneous
  Country: US (occurrence: US)
  Receive Date: 20150210
  Receipt Date: 20150210
  Transmission Date: 20150721
  Serious: No
  Sender: FDA-Public Use
  Company Number: US-GLAXOSMITHKLINE-A1065709A

PATIENT

DRUGS (28)
  1. ZOFRAN [Suspect]
     Active Substance: ONDANSETRON HYDROCHLORIDE
     Indication: VOMITING
  2. LIPITOR [Concomitant]
     Active Substance: ATORVASTATIN CALCIUM
  3. VENTOLIN [Concomitant]
     Active Substance: ALBUTEROL SULFATE
  4. PROTONIX [Concomitant]
     Active Substance: PANTOPRAZOLE SODIUM
  5. TAGAMET [Concomitant]
     Active Substance: CIMETIDINE
  6. IMODIUM [Concomitant]
     Active Substance: LOPERAMIDE HYDROCHLORIDE
  7. SUTENT [Suspect]
     Active Substance: SUNITINIB MALATE
     Indication: PRODUCT USED FOR UNKNOWN INDICATION
  8. PRIMIDONE. [Concomitant]
     Active Substance: PRIMIDONE
  9. LASIX [Concomitant]
     Active Substance: FUROSEMIDE
  10. COMPAZINE [Concomitant]
     Active Substance: PROCHLORPERAZINE MALEATE
  11. XARELTO [Concomitant]
     Active Substance: RIVAROXABAN
  12. ROXICODONE [Concomitant]
     Active Substance: OXYCODONE HYDROCHLORIDE
  13. NYSTATIN. [Concomitant]
     Active Substance: NYSTATIN
  14. ZOFRAN [Suspect]
     Active Substance: ONDANSETRON HYDROCHLORIDE
     Indication: NAUSEA
  15. METOPROLOL [Concomitant]
     Active Substance: METOPROLOL
  16. OXYGEN. [Concomitant]
     Active Substance: OXYGEN
  17. PLAVIX [Concomitant]
     Active Substance: CLOPIDOGREL BISULFATE
  18. ASPIRIN. [Concomitant]
     Active Substance: ASPIRIN
  19. DOXEPIN [Concomitant]
     Active Substance: DOXEPIN
  20. REQUIP [Concomitant]
     Active Substance: ROPINIROLE HYDROCHLORIDE
  21. TEMAZEPAM. [Concomitant]
     Active Substance: TEMAZEPAM
  22. VITAMIN D3 [Concomitant]
     Active Substance: CHOLECALCIFEROL
  23. SPIRIVA [Concomitant]
     Active Substance: TIOTROPIUM BROMIDE MONOHYDRATE
  24. DULCOLAX [Concomitant]
     Active Substance: BISACODYL OR DOCUSATE SODIUM
  25. OXYCONTIN [Concomitant]
     Active Substance: OXYCODONE HYDROCHLORIDE
  26. LOMOTIL [Concomitant]
     Active Substance: ATROPINE SULFATE\DIPHENOXYLATE HYDROCHLORIDE
  27. ALBUTEROL NEBULIZER [Concomitant]
     Active Substance: ALBUTEROL
  28. RECLAST [Concomitant]
     Active Substance: ZOLEDRONIC ACID

REACTIONS (2)
  - Diarrhoea [Unknown]
  - Weight fluctuation [Unknown]
